FAERS Safety Report 9550681 (Version 5)
Quarter: 2014Q2

REPORT INFORMATION
  Report Type: Report from Study
  Country: US (occurrence: US)
  Receive Date: 20130924
  Receipt Date: 20140505
  Transmission Date: 20141212
  Serious: Yes (Other)
  Sender: FDA-Public Use
  Company Number: US-SANOFI-AVENTIS-2013SA045758

PATIENT
  Age: 53 Year
  Sex: Female

DRUGS (2)
  1. AUBAGIO [Suspect]
     Indication: MULTIPLE SCLEROSIS
     Route: 048
     Dates: start: 20130414, end: 20140121
  2. AUBAGIO [Suspect]
     Indication: MULTIPLE SCLEROSIS
     Route: 048

REACTIONS (15)
  - Fall [Unknown]
  - Foot fracture [Unknown]
  - Visual acuity reduced [Not Recovered/Not Resolved]
  - Clumsiness [Unknown]
  - Vertigo [Not Recovered/Not Resolved]
  - Oropharyngeal pain [Unknown]
  - Contusion [Unknown]
  - Tremor [Not Recovered/Not Resolved]
  - Nystagmus [Not Recovered/Not Resolved]
  - Spinal column stenosis [Not Recovered/Not Resolved]
  - Osteoporosis [Unknown]
  - Nausea [Recovering/Resolving]
  - Influenza like illness [Unknown]
  - Alopecia [Recovering/Resolving]
  - Drug dose omission [Unknown]
